FAERS Safety Report 23151268 (Version 1)
Quarter: 2023Q4

REPORT INFORMATION
  Report Type: Report from Study
  Country: EG (occurrence: EG)
  Receive Date: 20231106
  Receipt Date: 20231106
  Transmission Date: 20240110
  Serious: Yes (Death)
  Sender: FDA-Public Use
  Company Number: EG-ABBVIE-5483874

PATIENT
  Sex: Male

DRUGS (2)
  1. VENCLEXTA [Suspect]
     Active Substance: VENETOCLAX
     Indication: Chronic lymphocytic leukaemia
     Dosage: 4 TABLET
     Route: 048
     Dates: start: 202307, end: 202310
  2. VENCLEXTA [Suspect]
     Active Substance: VENETOCLAX
     Indication: Chronic lymphocytic leukaemia
     Dosage: 4 TABLET
     Route: 048
     Dates: start: 2021, end: 202212

REACTIONS (3)
  - Pyrexia [Fatal]
  - Chronic lymphocytic leukaemia recurrent [Fatal]
  - Pneumonia [Fatal]

NARRATIVE: CASE EVENT DATE: 20230701
